FAERS Safety Report 23166649 (Version 1)
Quarter: 2023Q4

REPORT INFORMATION
  Report Type: Spontaneous
  Country: FR (occurrence: FR)
  Receive Date: 20231109
  Receipt Date: 20231109
  Transmission Date: 20240109
  Serious: Yes (Hospitalization, Other)
  Sender: FDA-Public Use
  Company Number: None

PATIENT
  Age: 93 Year
  Sex: Male
  Weight: 78.9 kg

DRUGS (4)
  1. LEVOFLOXACIN [Suspect]
     Active Substance: LEVOFLOXACIN
     Indication: Urinary tract infection
     Dates: start: 20230619, end: 20230619
  2. LEVOFLOXACIN [Suspect]
     Active Substance: LEVOFLOXACIN
     Dates: start: 20230617, end: 20230618
  3. ACETAMINOPHEN [Concomitant]
     Active Substance: ACETAMINOPHEN
     Indication: Urinary tract infection
     Dosage: 1G/D
     Dates: start: 20230613, end: 20230614
  4. AMOXICILLIN [Concomitant]
     Active Substance: AMOXICILLIN
     Indication: Urinary tract infection
     Dosage: 1G X 3/D
     Dates: start: 20230616, end: 20230617

REACTIONS (1)
  - Hepatic cytolysis [Recovered/Resolved]

NARRATIVE: CASE EVENT DATE: 20230620
